FAERS Safety Report 10460883 (Version 2)
Quarter: 2014Q4

REPORT INFORMATION
  Report Type: Spontaneous
  Country: JP (occurrence: None)
  Receive Date: 20140915
  Receipt Date: 20141016
  Transmission Date: 20150528
  Serious: Yes (Death)
  Sender: FDA-Public Use
  Company Number: B140414010

PATIENT
  Age: 29 Year
  Sex: Female

DRUGS (6)
  1. UNKNOWN (LACTULOSE) [Concomitant]
  2. KANAMYCIN (KANAMYCIN MONOSULFATE) [Concomitant]
  3. BUPHENYL [Suspect]
     Active Substance: SODIUM PHENYLBUTYRATE
     Indication: UREA CYCLE ENZYME DEFICIENCY
     Route: 048
     Dates: start: 20140407, end: 20140411
  4. UNKNOWN (SODIUM BENZOATE) [Concomitant]
  5. UNKNOWN (CEFTRIAXONE SODIUM HYDRATE) [Concomitant]
  6. ARGI-U [Concomitant]

REACTIONS (5)
  - Brain oedema [None]
  - Bacterial infection [None]
  - Concomitant disease aggravated [None]
  - Hyperammonaemia [None]
  - Cardiac arrest [None]

NARRATIVE: CASE EVENT DATE: 20140407
